FAERS Safety Report 17999334 (Version 1)
Quarter: 2020Q3

REPORT INFORMATION
  Report Type: Spontaneous
  Country: ES (occurrence: ES)
  Receive Date: 20200709
  Receipt Date: 20200709
  Transmission Date: 20201103
  Serious: Yes (Other)
  Sender: FDA-Public Use
  Company Number: NVSC2020ES186320

PATIENT
  Age: 71 Year
  Sex: Female
  Weight: 66 kg

DRUGS (4)
  1. AZITROMICINA [Suspect]
     Active Substance: AZITHROMYCIN DIHYDRATE
     Indication: COVID-19
     Dosage: 500 MG, QD (VIR 500 MG COMPRIMIDOS RECUBIERTOS CON PELICULA EFG, 150 COMPRIMIDOS)
     Route: 048
     Dates: start: 20200312, end: 20200316
  2. CEFTRIAXONA [Suspect]
     Active Substance: CEFTRIAXONE
     Indication: COVID-19
     Dosage: 1 G, QD
     Route: 042
     Dates: start: 20200312, end: 20200317
  3. INTERFERON BETA?1B [Suspect]
     Active Substance: INTERFERON BETA-1B
     Indication: COVID-19
     Dosage: 30 UG, QD
     Route: 058
     Dates: start: 20200313, end: 20200317
  4. REZOLSTA [Suspect]
     Active Substance: COBICISTAT\DARUNAVIR ETHANOLATE
     Indication: COVID-19
     Dosage: 1 DF, QD (800 MG / 150 MG COMPRIMIDOS RECUBIERTOS CON PELICULA 30 COMPRIMIDOS)
     Route: 048
     Dates: start: 20200312, end: 20200317

REACTIONS (4)
  - Vomiting [Recovered/Resolved]
  - Confusional state [Recovered/Resolved]
  - Fall [Recovered/Resolved]
  - Agitation [Recovered/Resolved]

NARRATIVE: CASE EVENT DATE: 20200313
